FAERS Safety Report 5003328-X (Version None)
Quarter: 2006Q2

REPORT INFORMATION
  Report Type: 
  Country: None (occurrence: None)
  Receive Date: 20060511
  Receipt Date: 20060503
  Transmission Date: 20061013
  Serious: Yes (Hospitalization, Other)
  Sender: FDA-Public Use
  Company Number: ZAWYE597203MAY06

PATIENT
  Sex: Male

DRUGS (2)
  1. EFFEXOR XR [Suspect]
     Indication: DEPRESSION
     Dosage: 75MG
     Dates: start: 20060201, end: 20060201
  2. COVERSYL (PERINDOPRIL) [Concomitant]

REACTIONS (4)
  - ABDOMINAL PAIN [None]
  - ANGINA PECTORIS [None]
  - BLINDNESS UNILATERAL [None]
  - HEADACHE [None]
